FAERS Safety Report 5257311-X (Version None)
Quarter: 2007Q1

REPORT INFORMATION
  Report Type: 
  Country: None (occurrence: None)
  Receive Date: 20070305
  Receipt Date: 20070206
  Transmission Date: 20070707
  Serious: No
  Sender: FDA-Public Use
  Company Number: 070202723

PATIENT
  Age: 82 Year
  Sex: Female

DRUGS (3)
  1. DELSYM [Suspect]
     Indication: NASOPHARYNGITIS
     Dosage: 2TSP, BID, ORAL
     Route: 048
     Dates: start: 20070101, end: 20070105
  2. SYNTHROID (THYROXINE SODIUM) [Concomitant]
  3. ADVIL [Concomitant]

REACTIONS (1)
  - DIARRHOEA [None]
